FAERS Safety Report 8220808-4 (Version None)
Quarter: 2012Q1

REPORT INFORMATION
  Report Type: 
  Country: None (occurrence: None)
  Receive Date: 20120307
  Receipt Date: 20100315
  Transmission Date: 20120608
  Serious: No
  Sender: FDA-Public Use
  Company Number: PHEH2010US02070

PATIENT
  Age: 67 Year
  Sex: Male

DRUGS (2)
  1. WARFARIN SODIUM [Concomitant]
  2. AFINITOR [Suspect]
     Dosage: 10 MG
     Dates: start: 20091001

REACTIONS (2)
  - HAEMORRHAGE [None]
  - VITREOUS FLOATERS [None]
